FAERS Safety Report 5834904-X (Version None)
Quarter: 2008Q3

REPORT INFORMATION
  Report Type: 
  Country: None (occurrence: None)
  Receive Date: 20080806
  Receipt Date: 20080724
  Transmission Date: 20090109
  Serious: Yes (Hospitalization)
  Sender: FDA-Public Use
  Company Number: GB-PFIZER INC-2008055939

PATIENT
  Sex: Female
  Weight: 75 kg

DRUGS (4)
  1. LYRICA [Suspect]
     Indication: NEURALGIA
     Route: 048
     Dates: start: 20080522, end: 20080612
  2. DRUG, UNSPECIFIED [Interacting]
     Indication: NERVE BLOCK
  3. MORPHINE [Concomitant]
     Route: 048
  4. ACETAMINOPHEN [Concomitant]
     Route: 048

REACTIONS (10)
  - BALANCE DISORDER [None]
  - DIZZINESS [None]
  - DRUG INTERACTION [None]
  - DRUG TOXICITY [None]
  - GASTROINTESTINAL DISORDER [None]
  - HALLUCINATION [None]
  - MUSCLE TWITCHING [None]
  - PAIN [None]
  - SOMNOLENCE [None]
  - VISION BLURRED [None]
